FAERS Safety Report 22202293 (Version 1)
Quarter: 2023Q2

REPORT INFORMATION
  Report Type: Spontaneous
  Country: NL (occurrence: NL)
  Receive Date: 20230412
  Receipt Date: 20230412
  Transmission Date: 20230721
  Serious: Yes (Other)
  Sender: FDA-Public Use
  Company Number: None

PATIENT
  Sex: Male
  Weight: 73 kg

DRUGS (1)
  1. FINASTERIDE [Suspect]
     Active Substance: FINASTERIDE
     Indication: Androgenetic alopecia
     Dosage: 1 MILLIGRAM DAILY; FINASTERIDE TABLET 1MG / BRAND NAME NOT SPECIFIED
     Route: 065
     Dates: start: 20220830, end: 20230102

REACTIONS (2)
  - Arrhythmia [Not Recovered/Not Resolved]
  - Palpitations [Not Recovered/Not Resolved]
